FAERS Safety Report 24631224 (Version 1)
Quarter: 2024Q4

REPORT INFORMATION
  Report Type: Spontaneous
  Country: US (occurrence: US)
  Receive Date: 20241118
  Receipt Date: 20241118
  Transmission Date: 20250115
  Serious: No
  Sender: PFIZER
  Company Number: US-PFIZER INC-202400209063

PATIENT
  Age: 55 Year
  Sex: Female

DRUGS (3)
  1. GEMCITABINE HYDROCHLORIDE [Suspect]
     Active Substance: GEMCITABINE HYDROCHLORIDE
     Indication: Transitional cell carcinoma metastatic
     Dosage: UNK
  2. AVELUMAB [Suspect]
     Active Substance: AVELUMAB
     Indication: Transitional cell carcinoma metastatic
     Dosage: UNK
  3. CISPLATIN [Suspect]
     Active Substance: CISPLATIN
     Indication: Transitional cell carcinoma metastatic
     Dosage: UNK

REACTIONS (2)
  - Neoplasm progression [Unknown]
  - Off label use [Unknown]
